FAERS Safety Report 5578472-9 (Version None)
Quarter: 2007Q4

REPORT INFORMATION
  Report Type: 
  Country: None (occurrence: None)
  Receive Date: 20071227
  Receipt Date: 20071221
  Transmission Date: 20080405
  Serious: Yes (Death, Hospitalization)
  Sender: FDA-Public Use
  Company Number: TCI2007A06616

PATIENT
  Age: 76 Year
  Sex: Male

DRUGS (4)
  1. LEUPROLIDE ACETATE [Suspect]
     Indication: PROSTATE CANCER STAGE II
     Dosage: 11.25 MG (11.25 MG, 1 IN 12 WK) SUBCUTANEOUS
     Route: 058
     Dates: start: 20060627, end: 20061219
  2. NORVASC [Concomitant]
  3. EPL (POLYENEPHOSPHATIDYLCHOLINE) (CAPSULES) [Concomitant]
  4. PREDINONE (PREDNISOLONE) (TABETS) [Concomitant]

REACTIONS (7)
  - BACTERIAL INFECTION [None]
  - INTERSTITIAL LUNG DISEASE [None]
  - MYOCARDIAL ISCHAEMIA [None]
  - PLEURAL EFFUSION [None]
  - RESPIRATORY FAILURE [None]
  - SPUTUM CULTURE POSITIVE [None]
  - STAPHYLOCOCCAL INFECTION [None]
